FAERS Safety Report 14099998 (Version 1)
Quarter: 2017Q4

REPORT INFORMATION
  Report Type: Report from Study
  Country: DE (occurrence: DE)
  Receive Date: 20171017
  Receipt Date: 20171017
  Transmission Date: 20180321
  Serious: Yes (Hospitalization)
  Sender: FDA-Public Use
  Company Number: DE-PFIZER INC-2015182486

PATIENT
  Age: 57 Year
  Sex: Male
  Weight: 118 kg

DRUGS (11)
  1. NOXAFIL [Concomitant]
     Active Substance: POSACONAZOLE
     Dosage: UNK
     Dates: start: 20150525, end: 20150526
  2. MERONEM [Suspect]
     Active Substance: MEROPENEM
     Dosage: 4 G, UNK
     Dates: start: 20150524, end: 20150524
  3. CYTARABINE. [Concomitant]
     Active Substance: CYTARABINE
     Indication: ACUTE MYELOID LEUKAEMIA
     Dosage: 240 MG, DAILY (CYCLIC)
     Dates: start: 20150508, end: 20150514
  4. TAVANIC [Concomitant]
     Active Substance: LEVOFLOXACIN
     Indication: PROPHYLAXIS
     Dosage: 500 MG, DAILY
     Dates: start: 20150505, end: 20150521
  5. GEMTUZUMAB OZOGAMICIN [Suspect]
     Active Substance: GEMTUZUMAB OZOGAMICIN
     Indication: ACUTE MYELOID LEUKAEMIA
     Dosage: 7.2 MG, DAILY (CYCLIC)
     Dates: start: 20150511
  6. ATRA [Concomitant]
     Active Substance: TRETINOIN
     Indication: ACUTE MYELOID LEUKAEMIA
     Dosage: 40 MG, DAILY
     Dates: start: 20150516, end: 20150628
  7. MERONEM [Suspect]
     Active Substance: MEROPENEM
     Indication: PYREXIA
     Dosage: 3 G, UNK
     Route: 042
     Dates: start: 20150523, end: 20150523
  8. NOXAFIL [Concomitant]
     Active Substance: POSACONAZOLE
     Indication: PYREXIA
     Dosage: 1.6 G, UNK
     Route: 048
     Dates: start: 20150515, end: 20150526
  9. IDARUBICIN HYDROCHLORIDE. [Concomitant]
     Active Substance: IDARUBICIN HYDROCHLORIDE
     Indication: ACUTE MYELOID LEUKAEMIA
     Dosage: 28.8 MG, DAILY (CYCLIC)
     Dates: start: 20150508, end: 20150512
  10. ETOPOSIDE. [Concomitant]
     Active Substance: ETOPOSIDE
     Indication: ACUTE MYELOID LEUKAEMIA
     Dosage: 240 MG, DAILY (CYCLIC)
     Dates: start: 20150508, end: 20150510
  11. CLINDAMYCIN. [Concomitant]
     Active Substance: CLINDAMYCIN
     Indication: PYREXIA
     Dosage: 1.8 G, UNK
     Route: 048
     Dates: start: 20150520, end: 20150526

REACTIONS (1)
  - Erythema nodosum [Recovered/Resolved]

NARRATIVE: CASE EVENT DATE: 20150525
